FAERS Safety Report 8881915 (Version 4)
Quarter: 2013Q1

REPORT INFORMATION
  Report Type: Spontaneous
  Country: US (occurrence: US)
  Receive Date: 20121101
  Receipt Date: 20130123
  Transmission Date: 20140127
  Serious: No
  Sender: FDA-Public Use
  Company Number: US-PFIZER INC-2012269322

PATIENT
  Age: 64 Year
  Sex: Male
  Weight: 74 kg

DRUGS (6)
  1. SUTENT [Suspect]
     Indication: NEOPLASM MALIGNANT
     Dosage: 50 MG, DAILY (FOR THE FIRST 42 DAY CYCLE)
     Dates: start: 20121008
  2. SUTENT [Suspect]
     Indication: METASTATIC RENAL CELL CARCINOMA
  3. LANTUS [Concomitant]
     Indication: TYPE 2 DIABETES MELLITUS
     Dosage: 20 IU, 2X/DAY (MORNING AND NIGHT)
  4. HYDRALAZINE [Concomitant]
     Dosage: UNK
  5. HYDROCHLOROTHIAZIDE [Concomitant]
     Dosage: UNK
  6. ADVIL [Concomitant]
     Dosage: UNK
     Dates: end: 20130117

REACTIONS (8)
  - Rash generalised [Recovered/Resolved]
  - Fatigue [Not Recovered/Not Resolved]
  - Hypertension [Not Recovered/Not Resolved]
  - Stomatitis [Recovered/Resolved]
  - Chest pain [Unknown]
  - Headache [Unknown]
  - Local swelling [Unknown]
  - Herpes zoster [Unknown]
